FAERS Safety Report 8433513-6 (Version None)
Quarter: 2012Q2

REPORT INFORMATION
  Report Type: 
  Country: None (occurrence: None)
  Receive Date: 20120613
  Receipt Date: 20120611
  Transmission Date: 20120825
  Serious: Yes (Hospitalization)
  Sender: FDA-Public Use
  Company Number: DE-NAPPMUNDI-DEU-2012-0009039

PATIENT
  Age: 55 Year
  Sex: Male
  Weight: 67 kg

DRUGS (4)
  1. OXYCODONE HYDROCHLORIDE [Suspect]
     Indication: PAIN
     Dosage: 10 MG, BID
     Route: 048
     Dates: start: 20111202, end: 20111204
  2. NOVALGIN                           /00169801/ [Suspect]
     Indication: CERVICOBRACHIAL SYNDROME
     Dosage: 40 GTT, TID
     Route: 048
     Dates: start: 20111202, end: 20111204
  3. PANTOPRAZOLE [Concomitant]
     Indication: ABDOMINAL PAIN UPPER
     Dosage: 40 MG, DAILY
     Route: 048
     Dates: start: 20111202, end: 20111204
  4. TETRAZEPAM [Concomitant]
     Indication: CERVICOBRACHIAL SYNDROME
     Dosage: 50 MG, DAILY
     Route: 048
     Dates: start: 20111202, end: 20111204

REACTIONS (1)
  - RASH GENERALISED [None]
